FAERS Safety Report 7498356-9 (Version None)
Quarter: 2011Q2

REPORT INFORMATION
  Report Type: 
  Country: None (occurrence: None)
  Receive Date: 20110524
  Receipt Date: 20110428
  Transmission Date: 20111010
  Serious: Yes (Other)
  Sender: FDA-Public Use
  Company Number: US-BAYER-201040691NA

PATIENT
  Age: 20 Year
  Sex: Female
  Weight: 65.76 kg

DRUGS (6)
  1. YAZ [Suspect]
     Indication: CONTRACEPTION
     Dosage: UNK
     Route: 048
     Dates: start: 20070901, end: 20090101
  2. DROSPIRENONE AND ETHINYL ESTRADIOL [Suspect]
     Indication: CONTRACEPTION
     Dosage: UNK
     Route: 048
     Dates: start: 20070901, end: 20090101
  3. MOTRIN [Concomitant]
     Indication: MIGRAINE
     Dosage: UNK
     Dates: start: 20110301
  4. YASMIN [Suspect]
     Indication: CONTRACEPTION
     Dosage: UNK
     Route: 048
     Dates: start: 20070901, end: 20090101
  5. ZITHROMAX [Concomitant]
     Dosage: UNK
     Dates: start: 20080101
  6. ZOVIA 1/35E-21 [Concomitant]
     Dosage: UNK
     Dates: start: 20100301

REACTIONS (3)
  - GALLBLADDER DISORDER [None]
  - CHOLELITHIASIS [None]
  - MENTAL DISORDER [None]
